FAERS Safety Report 8167581-6 (Version None)
Quarter: 2012Q1

REPORT INFORMATION
  Report Type: 
  Country: None (occurrence: None)
  Receive Date: 20120221
  Receipt Date: 20120203
  Transmission Date: 20120608
  Serious: No
  Sender: FDA-Public Use
  Company Number: ENDC20120007

PATIENT
  Sex: Female

DRUGS (1)
  1. ACETAMINOPHEN AND OXYCODONE HCL [Suspect]
     Indication: PRODUCT USED FOR UNKNOWN INDICATION
     Dosage: 5/ 325 MG, UNKNOWN, ORAL
     Route: 048

REACTIONS (5)
  - MALAISE [None]
  - NAUSEA [None]
  - CHEST PAIN [None]
  - VOMITING [None]
  - GINGIVAL PAIN [None]
